FAERS Safety Report 17906140 (Version 1)
Quarter: 2020Q2

REPORT INFORMATION
  Report Type: Spontaneous
  Country: US (occurrence: US)
  Receive Date: 20200616
  Receipt Date: 20200616
  Transmission Date: 20200714
  Serious: No
  Sender: FDA-Public Use
  Company Number: US-ROCHE-2332209

PATIENT
  Sex: Female

DRUGS (1)
  1. ACTEMRA [Suspect]
     Active Substance: TOCILIZUMAB
     Indication: RHEUMATOID ARTHRITIS
     Dosage: PFS 162 MG/0.9 M. ONGOING: YES
     Route: 058
     Dates: start: 20180726

REACTIONS (2)
  - No adverse event [Unknown]
  - Drug ineffective [Unknown]
